FAERS Safety Report 14599663 (Version 2)
Quarter: 2018Q1

REPORT INFORMATION
  Report Type: Spontaneous
  Country: JP (occurrence: JP)
  Receive Date: 20180305
  Receipt Date: 20180320
  Transmission Date: 20180509
  Serious: Yes (Hospitalization)
  Sender: FDA-Public Use
  Company Number: JP-ELI_LILLY_AND_COMPANY-JP201802012505

PATIENT
  Age: 72 Year
  Sex: Male

DRUGS (2)
  1. ERBITUX [Suspect]
     Active Substance: CETUXIMAB
     Indication: TONGUE NEOPLASM
     Dosage: 250 MG/M2, WEEKLY (1/W)
     Route: 041
     Dates: start: 20170420, end: 20170615
  2. PACLITAXEL. [Suspect]
     Active Substance: PACLITAXEL
     Indication: TONGUE NEOPLASM
     Dosage: 80 MG/M2, WEEKLY (1/W)
     Route: 041
     Dates: start: 20170420, end: 20170615

REACTIONS (2)
  - Febrile neutropenia [Recovered/Resolved]
  - Off label use [Unknown]

NARRATIVE: CASE EVENT DATE: 20170610
